FAERS Safety Report 4577665-7 (Version None)
Quarter: 2005Q1

REPORT INFORMATION
  Report Type: 
  Country: None (occurrence: None)
  Receive Date: 20050210
  Receipt Date: 20050103
  Transmission Date: 20050727
  Serious: Yes (Disabling)
  Sender: FDA-Public Use
  Company Number: US-MERCK-0501USA00082

PATIENT
  Age: 62 Year
  Sex: Female

DRUGS (6)
  1. VIOXX [Suspect]
     Indication: OSTEOARTHRITIS
     Route: 048
     Dates: start: 20010101, end: 20040930
  2. VIOXX [Suspect]
     Route: 048
     Dates: start: 20010101, end: 20040930
  3. VIOXX [Suspect]
     Route: 048
     Dates: start: 20010921, end: 20011201
  4. VIOXX [Suspect]
     Indication: SPINAL OSTEOARTHRITIS
     Route: 048
     Dates: start: 20010101, end: 20040930
  5. VIOXX [Suspect]
     Route: 048
     Dates: start: 20010101, end: 20040930
  6. VIOXX [Suspect]
     Route: 048
     Dates: start: 20010921, end: 20011201

REACTIONS (7)
  - DRUG INEFFECTIVE [None]
  - HYPERCHOLESTEROLAEMIA [None]
  - OVERDOSE [None]
  - PAIN [None]
  - PAIN IN EXTREMITY [None]
  - VARICOSE VEIN [None]
  - VENOUS OCCLUSION [None]
